FAERS Safety Report 9761233 (Version 1)
Quarter: 2013Q4

REPORT INFORMATION
  Report Type: Spontaneous
  Country: FR (occurrence: None)
  Receive Date: 20131212
  Receipt Date: 20131212
  Transmission Date: 20140711
  Serious: Yes (Hospitalization)
  Sender: FDA-Public Use
  Company Number: SYM-2013-13746

PATIENT
  Age: 55 Year
  Sex: Female

DRUGS (7)
  1. 5 FU [Suspect]
     Indication: COLORECTAL CANCER METASTATIC
     Dates: start: 20130729, end: 20130729
  2. AFLIBERCEPT (AFLIBERCEPT) (SOLUTION FOR INFUSION) (AFLIBERCEPT) [Suspect]
     Indication: COLORECTAL CANCER METASTATIC
     Dates: start: 20130729, end: 20130729
  3. IRINOTECAN (IRINOTECAN) (SOLUTION FOR INFUSION) (IRINOTECAN) [Suspect]
     Indication: COLORECTAL CANCER METASTATIC
     Dates: start: 20130729, end: 20130729
  4. LEUCOVORIN [Suspect]
     Indication: COLORECTAL CANCER METASTATIC
     Dates: start: 20130729, end: 20130729
  5. HEPARIN (HEPARIN) [Concomitant]
  6. ARANESP (DARBEPOETIN ALFA) [Concomitant]
  7. FERINJECT (FERRIC CARBOXYMALTOSE) [Concomitant]

REACTIONS (1)
  - Hyperthermia [None]
